FAERS Safety Report 18156530 (Version 1)
Quarter: 2020Q3

REPORT INFORMATION
  Report Type: Spontaneous
  Country: US (occurrence: US)
  Receive Date: 20200816
  Receipt Date: 20200816
  Transmission Date: 20201103
  Serious: Yes (Hospitalization)
  Sender: FDA-Public Use
  Company Number: None

PATIENT
  Age: 31 Year
  Sex: Female

DRUGS (3)
  1. SUMATRIPTAN. [Suspect]
     Active Substance: SUMATRIPTAN
     Indication: MIGRAINE
     Route: 058
     Dates: start: 20200815, end: 20200815
  2. RIZATRIPTAN 10MG TAB [Concomitant]
     Active Substance: RIZATRIPTAN
  3. CEQUA 0.09% [Concomitant]

REACTIONS (5)
  - Discomfort [None]
  - Speech disorder [None]
  - Cerebrovascular accident [None]
  - Cardiac disorder [None]
  - Hypoaesthesia [None]

NARRATIVE: CASE EVENT DATE: 20200815
